FAERS Safety Report 9201443 (Version 1)
Quarter: 2013Q2

REPORT INFORMATION
  Report Type: Spontaneous
  Country: US (occurrence: US)
  Receive Date: 20130401
  Receipt Date: 20130401
  Transmission Date: 20140414
  Serious: No
  Sender: FDA-Public Use
  Company Number: US-PFIZER INC-2006016723

PATIENT
  Age: 82 Year
  Sex: Female

DRUGS (2)
  1. LIPITOR [Suspect]
     Indication: BLOOD CHOLESTEROL INCREASED
     Dosage: ONE-HALF OF 10 MG TABLET, DAILY
  2. IBUPROFEN [Suspect]
     Indication: PAIN
     Dosage: UNK
     Dates: end: 200601

REACTIONS (5)
  - Myalgia [Not Recovered/Not Resolved]
  - Malaise [Unknown]
  - Vomiting [Unknown]
  - Body height decreased [Not Recovered/Not Resolved]
  - Hernia [Unknown]
